FAERS Safety Report 19767914 (Version 3)
Quarter: 2023Q2

REPORT INFORMATION
  Report Type: Spontaneous
  Country: RU (occurrence: None)
  Receive Date: 20210831
  Receipt Date: 20230615
  Transmission Date: 20230722
  Serious: Yes (Other)
  Sender: FDA-Public Use
  Company Number: RU-ROCHE-2899994

PATIENT
  Age: 46 Year
  Sex: Female

DRUGS (2)
  1. VEMURAFENIB [Suspect]
     Active Substance: VEMURAFENIB
     Indication: Product used for unknown indication
     Route: 065
  2. COBIMETINIB [Suspect]
     Active Substance: COBIMETINIB
     Indication: Product used for unknown indication
     Route: 065

REACTIONS (8)
  - Central serous chorioretinopathy [Unknown]
  - Hyperthyroidism [Unknown]
  - Dysphonia [Unknown]
  - Interstitial lung disease [Unknown]
  - Dry skin [Unknown]
  - Hypoaesthesia [Unknown]
  - Coronavirus infection [Unknown]
  - Therapy partial responder [Unknown]
